FAERS Safety Report 4691079-0 (Version None)
Quarter: 2005Q2

REPORT INFORMATION
  Report Type: 
  Country: None (occurrence: None)
  Receive Date: 20050610
  Receipt Date: 20050603
  Transmission Date: 20051028
  Serious: Yes (Hospitalization)
  Sender: FDA-Public Use
  Company Number: 200509353

PATIENT
  Age: 50 Year
  Sex: Male

DRUGS (5)
  1. STREPTASE [Suspect]
     Indication: MYOCARDIAL INFARCTION
     Dosage: 1.5 MIU DAILY IV
     Route: 042
     Dates: start: 20050323, end: 20050323
  2. ASPIRIN [Suspect]
     Indication: MYOCARDIAL INFARCTION
     Dosage: 325 MG DAILY PO
     Route: 048
     Dates: start: 20050323
  3. ENOXAPARIN SODIUM [Suspect]
     Indication: MYOCARDIAL INFARCTION
     Dosage: IV
     Route: 042
     Dates: start: 20050323, end: 20050327
  4. CLOPIDOGREL BISULFATE [Concomitant]
  5. SIMVASTATIN [Concomitant]

REACTIONS (6)
  - CHONDROCALCINOSIS PYROPHOSPHATE [None]
  - HYDROCELE [None]
  - LIVEDO RETICULARIS [None]
  - MONARTHRITIS [None]
  - POLYARTHRITIS [None]
  - SCROTAL SWELLING [None]
